FAERS Safety Report 5925611-3 (Version None)
Quarter: 2008Q4

REPORT INFORMATION
  Report Type: 
  Country: None (occurrence: None)
  Receive Date: 20081021
  Receipt Date: 20081017
  Transmission Date: 20090506
  Serious: Yes (Other)
  Sender: FDA-Public Use
  Company Number: B0540471A

PATIENT
  Age: 27 Year
  Sex: Female

DRUGS (1)
  1. MODACIN [Suspect]
     Indication: UTERINE INFECTION
     Dosage: 1G TWICE PER DAY
     Route: 042
     Dates: start: 20080926, end: 20081002

REACTIONS (2)
  - DRUG EXPOSURE DURING PREGNANCY [None]
  - PLATELET COUNT DECREASED [None]
